FAERS Safety Report 4732907-X (Version None)
Quarter: 2005Q3

REPORT INFORMATION
  Report Type: 
  Country: None (occurrence: None)
  Receive Date: 20050803
  Receipt Date: 20050512
  Transmission Date: 20060218
  Serious: No
  Sender: FDA-Public Use
  Company Number: US-GLAXOSMITHKLINE-A0558342A

PATIENT
  Age: 70 Year
  Sex: Male

DRUGS (12)
  1. AVANDAMET [Suspect]
     Route: 048
     Dates: start: 20040101
  2. GLUCOTROL [Concomitant]
  3. HYTRIN [Concomitant]
  4. AVAPRO [Concomitant]
  5. ATENOLOL [Concomitant]
  6. FOLIC ACID [Concomitant]
  7. RANITIDINE [Concomitant]
  8. LIPITOR [Concomitant]
  9. ECOTRIN [Concomitant]
  10. PROSCAR [Concomitant]
  11. POTASSIUM CITRATE [Concomitant]
  12. GLIPIZIDE [Concomitant]

REACTIONS (2)
  - MUSCLE SPASMS [None]
  - WEIGHT INCREASED [None]
